FAERS Safety Report 17965246 (Version 3)
Quarter: 2020Q3

REPORT INFORMATION
  Report Type: Spontaneous
  Country: US (occurrence: US)
  Receive Date: 20200630
  Receipt Date: 20200729
  Transmission Date: 20201103
  Serious: No
  Sender: FDA-Public Use
  Company Number: US-PFIZER INC-2020245003

PATIENT
  Age: 49 Year
  Sex: Female
  Weight: 42.64 kg

DRUGS (2)
  1. VALACYCLOVIR [Concomitant]
     Active Substance: VALACYCLOVIR HYDROCHLORIDE
     Indication: HERPES SIMPLEX ENCEPHALITIS
     Dosage: 500 MG, 2X/DAY
  2. CYTOMEL [Suspect]
     Active Substance: LIOTHYRONINE SODIUM
     Dosage: 2.5 UG (5MCG HALF A TABLET BY MOUTH ONCE A DAY BEFORE MEAL)
     Route: 048
     Dates: start: 20200616

REACTIONS (3)
  - Product physical consistency issue [Unknown]
  - Incorrect dose administered [Unknown]
  - Weight decreased [Unknown]
